FAERS Safety Report 5903579-3 (Version None)
Quarter: 2008Q3

REPORT INFORMATION
  Report Type: 
  Country: None (occurrence: None)
  Receive Date: 20080930
  Receipt Date: 20080910
  Transmission Date: 20090109
  Serious: Yes (Other)
  Sender: FDA-Public Use
  Company Number: AU-PFIZER INC-2008081406

PATIENT
  Sex: Female

DRUGS (2)
  1. CHANTIX [Suspect]
     Dates: end: 20080825
  2. DRUG, UNSPECIFIED [Concomitant]

REACTIONS (5)
  - DEPRESSION [None]
  - DIZZINESS [None]
  - HEADACHE [None]
  - NAUSEA [None]
  - SURGERY [None]
